FAERS Safety Report 16139662 (Version 1)
Quarter: 2019Q1

REPORT INFORMATION
  Report Type: Spontaneous
  Country: US (occurrence: US)
  Receive Date: 20190330
  Receipt Date: 20190330
  Transmission Date: 20190418
  Serious: No
  Sender: FDA-Public Use
  Company Number: US-TAKEDA-2019TUS017690

PATIENT
  Age: 4 Decade
  Sex: Male

DRUGS (4)
  1. TRINTELLIX [Suspect]
     Active Substance: VORTIOXETINE HYDROBROMIDE
     Dosage: 20 MILLIGRAM
     Route: 065
     Dates: start: 201903, end: 201903
  2. TRINTELLIX [Suspect]
     Active Substance: VORTIOXETINE HYDROBROMIDE
     Indication: MAJOR DEPRESSION
     Dosage: 10 MILLIGRAM
     Route: 065
     Dates: start: 2018
  3. TRINTELLIX [Suspect]
     Active Substance: VORTIOXETINE HYDROBROMIDE
     Dosage: 15 MILLIGRAM
     Route: 065
     Dates: start: 201901, end: 2019
  4. TRINTELLIX [Suspect]
     Active Substance: VORTIOXETINE HYDROBROMIDE
     Dosage: 10 MILLIGRAM
     Route: 065
     Dates: start: 201903

REACTIONS (3)
  - Condition aggravated [Not Recovered/Not Resolved]
  - Hallucination, auditory [Not Recovered/Not Resolved]
  - Drug ineffective [Unknown]

NARRATIVE: CASE EVENT DATE: 201903
